FAERS Safety Report 4371889-X (Version None)
Quarter: 2004Q2

REPORT INFORMATION
  Report Type: 
  Country: None (occurrence: None)
  Receive Date: 20040602
  Receipt Date: 20040602
  Transmission Date: 20050107
  Serious: Yes (Other)
  Sender: FDA-Public Use
  Company Number: None

PATIENT
  Age: 48 Year
  Sex: Male
  Weight: 90.7194 kg

DRUGS (3)
  1. CRESTOR [Suspect]
     Indication: HYPERLIPIDAEMIA
     Dosage: ONCE DAILY ORAL
     Route: 048
     Dates: start: 20040101, end: 20040405
  2. SYNTHROID [Concomitant]
  3. DDAVP [Concomitant]

REACTIONS (2)
  - MUSCLE CRAMP [None]
  - PAIN IN EXTREMITY [None]
